FAERS Safety Report 17159181 (Version 1)
Quarter: 2019Q4

REPORT INFORMATION
  Report Type: Spontaneous
  Country: US (occurrence: US)
  Receive Date: 20191214
  Receipt Date: 20191214
  Transmission Date: 20200122
  Serious: Yes (Hospitalization)
  Sender: FDA-Public Use
  Company Number: None

PATIENT
  Age: 74 Year
  Sex: Female
  Weight: 132.5 kg

DRUGS (8)
  1. FUROSEMIDE 20MG DAILY [Concomitant]
  2. RIVAROXABAN [Suspect]
     Active Substance: RIVAROXABAN
     Indication: THROMBOSIS PROPHYLAXIS
     Route: 048
     Dates: start: 20140619
  3. CARVEDILOL 6.25MG BID [Concomitant]
  4. PRAVASTATIN 80MG DAILY [Concomitant]
  5. METFORMIN 1000MG BID [Concomitant]
  6. RIVAROXABAN [Suspect]
     Active Substance: RIVAROXABAN
     Indication: ATRIAL FIBRILLATION
     Route: 048
     Dates: start: 20140619
  7. GLIPIZIDE 10MG BID [Concomitant]
  8. HYDROCHLOROTHIAZIDE 25MG DAILY [Concomitant]

REACTIONS (8)
  - Weight bearing difficulty [None]
  - Contusion [None]
  - Joint injury [None]
  - Road traffic accident [None]
  - Injury [None]
  - Haematoma [None]
  - Skin abrasion [None]
  - Fall [None]

NARRATIVE: CASE EVENT DATE: 20160520
